FAERS Safety Report 7134248-2 (Version None)
Quarter: 2010Q4

REPORT INFORMATION
  Report Type: 
  Country: None (occurrence: None)
  Receive Date: 20101203
  Receipt Date: 20101124
  Transmission Date: 20110411
  Serious: Yes (Other)
  Sender: FDA-Public Use
  Company Number: DE-SANOFI-AVENTIS-2010SA071153

PATIENT
  Age: 64 Year
  Sex: Female

DRUGS (5)
  1. MULTAQ [Suspect]
     Indication: ATRIAL FIBRILLATION
     Route: 048
     Dates: start: 20101001
  2. PREDNISOLONE [Concomitant]
     Indication: RHEUMATOID ARTHRITIS
     Route: 065
  3. EUTHYROX [Concomitant]
     Route: 065
  4. CETIRIZINE HCL [Concomitant]
     Route: 065
  5. RANITIDINE [Concomitant]
     Route: 065

REACTIONS (5)
  - CARDIAC FAILURE [None]
  - CONDITION AGGRAVATED [None]
  - DYSPNOEA [None]
  - JOINT SWELLING [None]
  - SKIN FISSURES [None]
